FAERS Safety Report 25024255 (Version 1)
Quarter: 2025Q1

REPORT INFORMATION
  Report Type: Spontaneous
  Country: US (occurrence: None)
  Receive Date: 20250228
  Receipt Date: 20250228
  Transmission Date: 20250408
  Serious: No
  Sender: INCYTE
  Company Number: US-INCYTE CORPORATION-2025IN001839

PATIENT

DRUGS (1)
  1. JAKAFI [Suspect]
     Active Substance: RUXOLITINIB
     Indication: Polycythaemia vera
     Dosage: 5 MILLIGRAM, BID

REACTIONS (5)
  - Gastrointestinal motility disorder [Unknown]
  - Abdominal discomfort [Unknown]
  - Dyschezia [Unknown]
  - Faeces hard [Unknown]
  - Constipation [Unknown]
